FAERS Safety Report 18718018 (Version 1)
Quarter: 2021Q1

REPORT INFORMATION
  Report Type: Spontaneous
  Country: US (occurrence: US)
  Receive Date: 20210108
  Receipt Date: 20210108
  Transmission Date: 20210419
  Serious: Yes (Life-Threatening, Hospitalization, Disabling)
  Sender: FDA-Public Use
  Company Number: None

PATIENT
  Age: 36 Year
  Sex: Female
  Weight: 60 kg

DRUGS (1)
  1. DIBAR LABS HAND SANITIZER [Suspect]
     Active Substance: ALCOHOL
     Dates: start: 20210106

REACTIONS (3)
  - Blood methanol increased [None]
  - Haemodialysis [None]
  - Coma [None]

NARRATIVE: CASE EVENT DATE: 20210106
